FAERS Safety Report 7706815-6 (Version None)
Quarter: 2011Q3

REPORT INFORMATION
  Report Type: 
  Country: None (occurrence: None)
  Receive Date: 20110824
  Receipt Date: 20110809
  Transmission Date: 20111222
  Serious: Yes (Hospitalization)
  Sender: FDA-Public Use
  Company Number: FR-MERCK-0912FRA00084

PATIENT
  Age: 78 Year
  Sex: Male

DRUGS (9)
  1. ALFUZOSIN HYDROCHLORIDE [Concomitant]
     Route: 048
  2. FUROSEMIDE [Concomitant]
     Route: 048
  3. BACLOFEN [Concomitant]
     Route: 048
  4. ESCITALOPRAM OXALATE [Concomitant]
     Route: 048
  5. ACETAMINOPHEN [Concomitant]
     Route: 065
  6. POLYETHYLENE GLYCOL 3350 AND POTASSIUM CHLORIDE AND SODIUM BICARBONATE [Concomitant]
     Route: 048
  7. INVANZ [Suspect]
     Indication: URINARY TRACT INFECTION
     Route: 042
     Dates: start: 20090925, end: 20091003
  8. CLONAZEPAM [Concomitant]
     Route: 048
  9. VALSARTAN [Concomitant]
     Route: 048

REACTIONS (3)
  - HALLUCINATION [None]
  - DELIRIUM [None]
  - VISUAL IMPAIRMENT [None]
